FAERS Safety Report 5527560-1 (Version None)
Quarter: 2007Q4

REPORT INFORMATION
  Report Type: 
  Country: None (occurrence: None)
  Receive Date: 20071128
  Receipt Date: 20071114
  Transmission Date: 20080405
  Serious: Yes (Hospitalization)
  Sender: FDA-Public Use
  Company Number: US-ELI_LILLY_AND_COMPANY-US200711003209

PATIENT
  Sex: Female

DRUGS (2)
  1. FORTEO [Suspect]
     Dosage: UNK, UNK
     Dates: end: 20040101
  2. FORTEO [Suspect]
     Dates: start: 20070901

REACTIONS (10)
  - ARTHRALGIA [None]
  - BONE DENSITY DECREASED [None]
  - BONE PAIN [None]
  - CALCIUM DEFICIENCY [None]
  - DIZZINESS [None]
  - GASTRIC DISORDER [None]
  - GASTROINTESTINAL INFECTION [None]
  - GASTROOESOPHAGEAL REFLUX DISEASE [None]
  - PAIN IN EXTREMITY [None]
  - RECTAL HAEMORRHAGE [None]
